FAERS Safety Report 5614421-2 (Version None)
Quarter: 2008Q1

REPORT INFORMATION
  Report Type: 
  Country: None (occurrence: None)
  Receive Date: 20080205
  Receipt Date: 20080128
  Transmission Date: 20080703
  Serious: Yes (Other)
  Sender: FDA-Public Use
  Company Number: ES-ABBOTT-08P-144-0433975-00

PATIENT
  Age: 39 Year
  Sex: Male

DRUGS (6)
  1. SEVORANE [Suspect]
     Indication: SURGERY
     Dates: start: 20071212, end: 20071212
  2. NITRAZEPAM [Suspect]
     Indication: SURGERY
     Dates: start: 20071212, end: 20071212
  3. NIMBEX [Suspect]
     Indication: SURGERY
     Dates: start: 20071212, end: 20071212
  4. PROPOFOL [Suspect]
     Indication: SURGERY
     Dosage: 1 %
     Dates: start: 20071212, end: 20071212
  5. FENTANYL CITRATE [Suspect]
     Indication: SURGERY
     Dates: start: 20071212, end: 20071212
  6. ANECTINE [Suspect]
     Indication: SURGERY
     Dates: start: 20071212, end: 20071212

REACTIONS (1)
  - PRIAPISM [None]
